APPROVED DRUG PRODUCT: HOMATROPINE METHYLBROMIDE AND HYDROCODONE BITARTRATE
Active Ingredient: HOMATROPINE METHYLBROMIDE; HYDROCODONE BITARTRATE
Strength: 1.5MG;5MG
Dosage Form/Route: TABLET;ORAL
Application: A091528 | Product #001
Applicant: NOVEL LABORATORIES INC
Approved: Apr 20, 2011 | RLD: No | RS: No | Type: DISCN